FAERS Safety Report 7417423-9 (Version None)
Quarter: 2011Q2

REPORT INFORMATION
  Report Type: 
  Country: None (occurrence: None)
  Receive Date: 20110408
  Receipt Date: 20110329
  Transmission Date: 20111010
  Serious: Yes (Disabling)
  Sender: FDA-Public Use
  Company Number: 877044

PATIENT
  Age: 12 Year
  Sex: Male

DRUGS (6)
  1. (CYTARABINE) [Suspect]
     Indication: MYELOID LEUKAEMIA
     Dosage: 60 MG INTRATHECAL ; 30 MG INTRATHECAL
     Route: 037
  2. ETOPOSIDE [Suspect]
     Indication: MYELOID LEUKAEMIA
     Dosage: 100 MG/M^2, 5 TIMES INTRAVENOUS (NOT OTHERWISE SPECIFIED)
     Route: 042
  3. HYDROCORTISONE [Suspect]
     Indication: MYELOID LEUKAEMIA
     Dosage: 24 MG INTRATHECAL
     Route: 037
  4. (CYTARABINE) [Suspect]
     Indication: MYELOID LEUKAEMIA
     Dosage: 3000 MG/M^2, 6 TIMES INTRAVENOUS (NOT OTHERWISE SPECIFIED) ; INTRAVENOUS (NOT OTHERWISE SPECIFIED)
     Route: 042
  5. METHOTEXATE [Suspect]
     Indication: MYELOID LEUKAEMIA
     Dosage: 12 MG INTRATHECAL
     Route: 037
  6. (DAUNOMYCIN /00128201/) [Suspect]
     Indication: MYELOID LEUKAEMIA
     Dosage: 50 MG/M^2, 3 TIMES INTRAVENOUS (NOT OTHERWISE SPECIFIED)
     Route: 042

REACTIONS (6)
  - DYSARTHRIA [None]
  - ATAXIA [None]
  - GAIT DISTURBANCE [None]
  - NYSTAGMUS [None]
  - DEAFNESS [None]
  - OCULOGYRIC CRISIS [None]
